FAERS Safety Report 6043506-4 (Version None)
Quarter: 2009Q1

REPORT INFORMATION
  Report Type: 
  Country: None (occurrence: None)
  Receive Date: 20090115
  Receipt Date: 20090115
  Transmission Date: 20090719
  Serious: No
  Sender: FDA-Public Use
  Company Number: None

PATIENT
  Age: 36 Year
  Sex: Female
  Weight: 86.1834 kg

DRUGS (1)
  1. CELEXA [Suspect]
     Indication: GENERALISED ANXIETY DISORDER
     Dosage: 60 MG ONCE PO
     Route: 048

REACTIONS (6)
  - ABNORMAL BEHAVIOUR [None]
  - AMNESIA [None]
  - ASTHENIA [None]
  - FEELING ABNORMAL [None]
  - LETHARGY [None]
  - SLEEP TERROR [None]
